FAERS Safety Report 7626934-2 (Version None)
Quarter: 2011Q3

REPORT INFORMATION
  Report Type: 
  Country: None (occurrence: None)
  Receive Date: 20110721
  Receipt Date: 20110713
  Transmission Date: 20111222
  Serious: Yes (Hospitalization, Congenital Anomaly, Other)
  Sender: FDA-Public Use
  Company Number: US-PFIZER INC-2011159902

PATIENT
  Sex: Male
  Weight: 1 kg

DRUGS (4)
  1. EFFEXOR [Suspect]
     Dosage: UNK,
     Route: 064
  2. ZOLOFT [Suspect]
     Dosage: UNK,
     Route: 064
  3. INSULIN [Concomitant]
     Dosage: UNK,
     Route: 064
  4. PRENATAL VITAMINS [Concomitant]
     Dosage: UNK,
     Route: 064

REACTIONS (7)
  - UMBILICAL HERNIA [None]
  - FALLOT'S TETRALOGY [None]
  - INGUINAL HERNIA [None]
  - HEMIVERTEBRA [None]
  - MATERNAL EXPOSURE DURING PREGNANCY [None]
  - PATENT DUCTUS ARTERIOSUS [None]
  - HYDRONEPHROSIS [None]
